FAERS Safety Report 8948618 (Version 3)
Quarter: 2013Q1

REPORT INFORMATION
  Report Type: Spontaneous
  Country: FR (occurrence: FR)
  Receive Date: 20121206
  Receipt Date: 20130125
  Transmission Date: 20140127
  Serious: Yes (Hospitalization, Other)
  Sender: FDA-Public Use
  Company Number: PHHY2012FR110143

PATIENT
  Age: 81 Year
  Sex: Female

DRUGS (3)
  1. COMTAN [Suspect]
     Indication: PARKINSON^S DISEASE
     Dosage: 5 DF, QD
     Route: 048
     Dates: start: 201209, end: 20121009
  2. MODOPAR [Suspect]
     Dosage: 8 DF, QD
     Route: 048
  3. MODOPAR [Suspect]
     Dosage: 6 DF,(2DF AT 7:00AM, 1DF AT 10:00AM, 2DF AT MIDDAY AND 1DF AT 06:00PM)
     Route: 048

REACTIONS (11)
  - Dyskinesia [Recovered/Resolved]
  - Blood pressure increased [Unknown]
  - Fall [Unknown]
  - Autonomic nervous system imbalance [Not Recovered/Not Resolved]
  - General physical health deterioration [Unknown]
  - On and off phenomenon [Unknown]
  - Gait disturbance [Unknown]
  - Bradyphrenia [Unknown]
  - Tremor [Unknown]
  - Akinesia [Unknown]
  - Muscle rigidity [Unknown]
